FAERS Safety Report 17487396 (Version 1)
Quarter: 2020Q1

REPORT INFORMATION
  Report Type: Spontaneous
  Country: US (occurrence: US)
  Receive Date: 20200302
  Receipt Date: 20200302
  Transmission Date: 20200409
  Serious: No
  Sender: FDA-Public Use
  Company Number: None

PATIENT
  Age: 76 Year
  Sex: Male
  Weight: 78.75 kg

DRUGS (1)
  1. DUREZOL [Suspect]
     Active Substance: DIFLUPREDNATE
     Indication: PROPHYLAXIS
     Route: 061
     Dates: start: 20200225, end: 20200228

REACTIONS (4)
  - Inflammation [None]
  - Intraocular pressure increased [None]
  - Corneal oedema [None]
  - Toxic anterior segment syndrome [None]

NARRATIVE: CASE EVENT DATE: 20200224
